FAERS Safety Report 4374874-7 (Version None)
Quarter: 2004Q2

REPORT INFORMATION
  Report Type: 
  Country: None (occurrence: None)
  Receive Date: 20040602
  Receipt Date: 20031001
  Transmission Date: 20050107
  Serious: Yes (Other)
  Sender: FDA-Public Use
  Company Number: US-JNJFOC-20031004274

PATIENT
  Age: 45 Year
  Sex: Female
  Weight: 63.05 kg

DRUGS (6)
  1. PROPULSID [Suspect]
     Indication: GASTROOESOPHAGEAL REFLUX DISEASE
     Dosage: 10 MG, 3 IN 1 DAY
     Dates: start: 19940501
  2. ELAVIL [Concomitant]
  3. CARDIAZEM (DILTIAZEM HYDROCHLORIDE) [Concomitant]
  4. INDERAL [Concomitant]
  5. DIGOXIN [Concomitant]
  6. TENORMAN (ATENOLOL) [Concomitant]

REACTIONS (1)
  - TACHYCARDIA [None]
